FAERS Safety Report 16820665 (Version 1)
Quarter: 2019Q3

REPORT INFORMATION
  Report Type: Spontaneous
  Country: NL (occurrence: NL)
  Receive Date: 20190918
  Receipt Date: 20190918
  Transmission Date: 20191005
  Serious: Yes (Hospitalization)
  Sender: FDA-Public Use
  Company Number: NL-TEVA-2019-NL-1107647

PATIENT
  Age: 71 Year
  Sex: Female
  Weight: 84 kg

DRUGS (11)
  1. CLINDAMYCINE CAPSULE, 300 MG (MILLIGRAM) [Suspect]
     Active Substance: CLINDAMYCIN
     Indication: ERYSIPELAS
     Dosage: 3X PER DAY 2 PIECES (600 MILLIGRAM)
     Dates: start: 20190822, end: 20190823
  2. HYDROXYCHLOROQUINE TABLET OMHULD 200MG [Concomitant]
     Dosage: ORAL 1 X PER DAY 1 PIECE (200 MILLIGRAM PER 12 HOURS)
  3. METOPROLOL TABLET MGA 50MG (SUCCINAAT); [Concomitant]
     Dosage: ORAL 1 X PER DAY 1 PIECE (50 MILLIGRAM)
  4. METHOTREXAAT INJ SP 20MG=0,4ML (50MG/ML) [Concomitant]
     Dosage: SUBCUTANEOUSLY ONLY ON FRIDAY 20 MILLIGRAMS
  5. IRBESARTAN TABLET 150MG [Concomitant]
     Dosage: ORAL 1 X PER DAY 1 PIECE (150 MILLIGRAM)
  6. MOMETASON VETZALF 1MG/G; [Concomitant]
     Dosage: CUTANEOUS 1X DAILY LUBRICATION 1 X PER DAY
  7. OMEPRAZOL CAPSULE MSR 20MG [Concomitant]
     Active Substance: OMEPRAZOLE
     Dosage: ORAL 1 X PER DAY 1 PIECE (20 MILLIGRAM)
  8. FOLIUMZUUR TABLET 5MG [Concomitant]
     Active Substance: FOLIC ACID
     Dosage: ORAL NOT ON FRIDAY 1 PIECE
  9. NIFEDIPINE TABLET MGA 30MG [Concomitant]
     Active Substance: NIFEDIPINE
     Dosage: ORAL 1 X PER DAY 1 PIECE (30 MILLIGRAM)
  10. CALCIUMCARB/COLECALC KAUWTB 2,5G/880IE (1000MG CA); [Concomitant]
     Dosage: ORAL 1 X PER DAY 1 PIECE
  11. URSODEOXYCHOLZUUR TABLET 300MG [Concomitant]
     Dosage: ORAL 1 X PER DAY 1 PIECE (300 MILLIGRAM)

REACTIONS (1)
  - Chest discomfort [Recovered/Resolved]

NARRATIVE: CASE EVENT DATE: 20190822
